FAERS Safety Report 10569693 (Version 1)
Quarter: 2014Q4

REPORT INFORMATION
  Report Type: Spontaneous
  Country: CN (occurrence: CN)
  Receive Date: 20141107
  Receipt Date: 20141107
  Transmission Date: 20150529
  Serious: Yes (Hospitalization)
  Sender: FDA-Public Use
  Company Number: CN-ACCORD-026831

PATIENT
  Age: 75 Year
  Sex: Female

DRUGS (6)
  1. AMIODARONE [Concomitant]
     Active Substance: AMIODARONE
     Indication: PRODUCT USED FOR UNKNOWN INDICATION
     Dosage: 0.2 G/TIME/DAY
  2. TRAMADOL/TRAMADOL HYDROCHLORIDE [Suspect]
     Active Substance: TRAMADOL HYDROCHLORIDE
     Indication: OSTEOARTHRITIS
     Dosage: TWICE/DAY/THREE DAY USING
     Route: 048
  3. NOVOLIN [Concomitant]
     Active Substance: INSULIN HUMAN
     Indication: TYPE 2 DIABETES MELLITUS
     Dosage: 30R IN 6IU BEFORE BREAKFAST AND SUPPER
     Route: 058
  4. FOSINOPRIL [Concomitant]
     Active Substance: FOSINOPRIL
     Indication: HYPERTENSION
     Dosage: /TIME/DAY
  5. METOPROLOL [Concomitant]
     Active Substance: METOPROLOL
     Indication: PRODUCT USED FOR UNKNOWN INDICATION
     Dosage: 71.25MG/TIME/DAY
  6. WARFARIN [Interacting]
     Active Substance: WARFARIN
     Indication: PRODUCT USED FOR UNKNOWN INDICATION
     Dosage: 1.5MG/ODD-NUMBER DAY, 2.25MG/EVEN-NUMBERED DAY

REACTIONS (5)
  - Ecchymosis [Recovering/Resolving]
  - Dysuria [Recovering/Resolving]
  - Petechiae [Recovering/Resolving]
  - Drug interaction [Unknown]
  - Haematuria [Recovering/Resolving]
